FAERS Safety Report 4751711-X (Version None)
Quarter: 2005Q3

REPORT INFORMATION
  Report Type: 
  Country: None (occurrence: None)
  Receive Date: 20050824
  Receipt Date: 20050816
  Transmission Date: 20060218
  Serious: Yes (Other)
  Sender: FDA-Public Use
  Company Number: 2005UW12186

PATIENT
  Age: 51 Year
  Sex: Female
  Weight: 90.7 kg

DRUGS (9)
  1. NEXIUM [Suspect]
     Indication: GASTROOESOPHAGEAL REFLUX DISEASE
     Route: 048
     Dates: start: 20040101
  2. ARAVA [Concomitant]
  3. REMICADE [Concomitant]
  4. PREDNISONE [Concomitant]
  5. PREMARIN [Concomitant]
  6. BACLOFEN [Concomitant]
  7. K-DUR 10 [Concomitant]
  8. LASIX [Concomitant]
  9. TOPROL-XL [Concomitant]
     Route: 048

REACTIONS (3)
  - APHONIA [None]
  - NASOPHARYNGITIS [None]
  - VOCAL CORD PARALYSIS [None]
